FAERS Safety Report 9334640 (Version 2)
Quarter: 2015Q3

REPORT INFORMATION
  Report Type: Spontaneous
  Country: US (occurrence: US)
  Receive Date: 20130606
  Receipt Date: 20150824
  Transmission Date: 20151125
  Serious: Yes (Hospitalization, Disabling, Other)
  Sender: FDA-Public Use
  Company Number: US-009507513-1205USA04813

PATIENT
  Sex: Female

DRUGS (5)
  1. ALENDRONATE SODIUM. [Suspect]
     Active Substance: ALENDRONATE SODIUM
     Indication: BONE DENSITY DECREASED
     Dosage: 70 MG, UNK
     Dates: start: 20080905, end: 20081005
  2. ACTONEL [Suspect]
     Active Substance: RISEDRONATE SODIUM
     Indication: BONE DENSITY DECREASED
     Dosage: 35 MG, UNK
     Route: 048
     Dates: start: 20090202, end: 20100811
  3. ALENDRONATE SODIUM. [Suspect]
     Active Substance: ALENDRONATE SODIUM
     Indication: BONE DENSITY DECREASED
     Dosage: 70 MG, UNK
     Route: 048
     Dates: start: 20080602
  4. FOSAMAX [Suspect]
     Active Substance: ALENDRONATE SODIUM
     Indication: BONE DENSITY DECREASED
     Dosage: 70 MG, QW
     Route: 048
     Dates: start: 20071210, end: 20080324
  5. FOSAMAX [Suspect]
     Active Substance: ALENDRONATE SODIUM
     Dosage: 70 MG, QW
     Route: 048
     Dates: end: 201004

REACTIONS (36)
  - Arthralgia [Unknown]
  - Hyperparathyroidism [Unknown]
  - Rhinitis allergic [Unknown]
  - Uterovaginal prolapse [Unknown]
  - Pain in extremity [Unknown]
  - Gastrointestinal perforation [Unknown]
  - Anxiety [Unknown]
  - Nasal operation [Unknown]
  - Osteoporosis [Unknown]
  - Arthritis [Unknown]
  - Hyperlipidaemia [Unknown]
  - Surgery [Unknown]
  - Arthroscopy [Unknown]
  - Plasma cell myeloma [Unknown]
  - Irritable bowel syndrome [Unknown]
  - Femur fracture [Unknown]
  - Body height decreased [Unknown]
  - Iliotibial band syndrome [Unknown]
  - Fall [Unknown]
  - Vomiting [Unknown]
  - Gastrooesophageal reflux disease [Unknown]
  - Asthma [Unknown]
  - Depression [Unknown]
  - Femur fracture [Recovering/Resolving]
  - Wrist fracture [Unknown]
  - Meniscus injury [Unknown]
  - Hypothyroidism [Unknown]
  - Cervical dysplasia [Unknown]
  - Ligament sprain [Unknown]
  - Arthralgia [Unknown]
  - Osteoarthritis [Unknown]
  - Pain [Not Recovered/Not Resolved]
  - Suture insertion [Unknown]
  - Vitamin D deficiency [Unknown]
  - Hypoparathyroidism [Unknown]
  - Osteoarthritis [Unknown]

NARRATIVE: CASE EVENT DATE: 2006
